FAERS Safety Report 8797374 (Version 2)
Quarter: 2015Q1

REPORT INFORMATION
  Report Type: Report from Study
  Country: US (occurrence: US)
  Receive Date: 20120919
  Receipt Date: 20150313
  Transmission Date: 20150721
  Serious: Yes (Death, Hospitalization)
  Sender: FDA-Public Use
  Company Number: US-ROCHE-1104320

PATIENT
  Sex: Male
  Weight: 54.5 kg

DRUGS (20)
  1. AVASTIN [Suspect]
     Active Substance: BEVACIZUMAB
     Indication: LUNG NEOPLASM MALIGNANT
     Route: 042
  2. CARBOPLATIN. [Concomitant]
     Active Substance: CARBOPLATIN
  3. OXYCONTIN [Concomitant]
     Active Substance: OXYCODONE HYDROCHLORIDE
     Route: 048
  4. TAXOL [Concomitant]
     Active Substance: PACLITAXEL
     Route: 065
  5. ATIVAN [Concomitant]
     Active Substance: LORAZEPAM
     Route: 048
  6. OXYCODONE [Concomitant]
     Active Substance: OXYCODONE
     Route: 048
  7. COMPAZINE [Concomitant]
     Active Substance: PROCHLORPERAZINE MALEATE
     Route: 065
  8. COLACE [Concomitant]
     Active Substance: DOCUSATE SODIUM
     Route: 065
  9. PREDNISONE. [Concomitant]
     Active Substance: PREDNISONE
     Route: 048
  10. PROCRIT [Concomitant]
     Active Substance: ERYTHROPOIETIN
     Route: 065
  11. ALBUTEROL. [Concomitant]
     Active Substance: ALBUTEROL
     Route: 065
  12. SENOKOT [Concomitant]
     Active Substance: SENNOSIDES
     Route: 065
  13. PRILOSEC [Concomitant]
     Active Substance: OMEPRAZOLE MAGNESIUM
     Route: 048
  14. AVELOX (UNITED STATES) [Concomitant]
     Route: 065
  15. ADVAIR HFA [Concomitant]
     Active Substance: FLUTICASONE PROPIONATE\SALMETEROL XINAFOATE
     Route: 065
  16. LISINOPRIL. [Concomitant]
     Active Substance: LISINOPRIL
     Route: 048
  17. TARCEVA [Suspect]
     Active Substance: ERLOTINIB HYDROCHLORIDE
     Indication: LUNG NEOPLASM MALIGNANT
     Route: 048
     Dates: start: 20060424
  18. CARAFATE [Concomitant]
     Active Substance: SUCRALFATE
     Route: 048
  19. ATROVENT [Concomitant]
     Active Substance: IPRATROPIUM BROMIDE
     Route: 065
  20. NAVELBINE [Concomitant]
     Active Substance: VINORELBINE TARTRATE
     Route: 065

REACTIONS (12)
  - Nausea [Unknown]
  - Disease progression [Unknown]
  - Fatigue [Unknown]
  - Death [Fatal]
  - Dyspnoea [Unknown]
  - Rash [Recovered/Resolved]
  - Pleural effusion [Unknown]
  - Neutropenia [Unknown]
  - Pneumonia [Unknown]
  - Acne [Recovered/Resolved]
  - Productive cough [Unknown]
  - Pain [Unknown]
